FAERS Safety Report 10159307 (Version 2)
Quarter: 2014Q2

REPORT INFORMATION
  Report Type: Spontaneous
  Country: US (occurrence: None)
  Receive Date: 20140506
  Receipt Date: 20140603
  Transmission Date: 20141212
  Serious: Yes (Hospitalization)
  Sender: FDA-Public Use
  Company Number: 2014US003223

PATIENT
  Age: 64 Year
  Sex: Male

DRUGS (3)
  1. ICLUSING [Suspect]
     Indication: CHRONIC MYELOID LEUKAEMIA
     Route: 048
     Dates: start: 20140228
  2. WARFARIN [Concomitant]
  3. PLAVIX (CLOPIDOGREL BISULFATE) [Concomitant]

REACTIONS (4)
  - Oedema peripheral [None]
  - Coronary artery disease [None]
  - Coronary arterial stent insertion [None]
  - Erythema [None]
